FAERS Safety Report 12584948 (Version 3)
Quarter: 2017Q1

REPORT INFORMATION
  Report Type: Report from Study
  Country: US (occurrence: US)
  Receive Date: 20160722
  Receipt Date: 20170124
  Transmission Date: 20170428
  Serious: No
  Sender: FDA-Public Use
  Company Number: US-AMGEN-USASL2016070412

PATIENT
  Age: 78 Year
  Sex: Male

DRUGS (2)
  1. REPATHA [Suspect]
     Active Substance: EVOLOCUMAB
     Indication: HYPERCHOLESTEROLAEMIA
     Dosage: 140 MG, Q2WK
     Route: 065
     Dates: start: 20160519
  2. REPATHA [Suspect]
     Active Substance: EVOLOCUMAB
     Indication: HYPERLIPIDAEMIA

REACTIONS (12)
  - Urine output decreased [Recovered/Resolved]
  - Gastrointestinal hypomotility [Recovered/Resolved]
  - Chills [Unknown]
  - Dysgeusia [Unknown]
  - Dyspnoea [Unknown]
  - Pyrexia [Unknown]
  - Abdominal pain [Unknown]
  - Decreased appetite [Unknown]
  - Underdose [Unknown]
  - Joint swelling [Recovered/Resolved]
  - Wrong technique in product usage process [Unknown]
  - Arthralgia [Unknown]

NARRATIVE: CASE EVENT DATE: 20160531
